FAERS Safety Report 12398421 (Version 2)
Quarter: 2016Q2

REPORT INFORMATION
  Report Type: Spontaneous
  Country: CH (occurrence: CH)
  Receive Date: 20160524
  Receipt Date: 20160610
  Transmission Date: 20160815
  Serious: Yes (Death)
  Sender: FDA-Public Use
  Company Number: CH-TAKEDA-2016MPI004560

PATIENT
  Sex: Female

DRUGS (4)
  1. RITUXIMAB [Concomitant]
     Active Substance: RITUXIMAB
     Dosage: 540 MG, UNK
     Route: 065
     Dates: start: 20160419
  2. DEXAMETHASONE. [Concomitant]
     Active Substance: DEXAMETHASONE
     Dosage: UNK
     Route: 065
  3. METRONIDAZOLE. [Concomitant]
     Active Substance: METRONIDAZOLE
     Indication: PRODUCT USED FOR UNKNOWN INDICATION
     Dosage: 500 MG, TID
     Route: 065
  4. VELCADE [Suspect]
     Active Substance: BORTEZOMIB
     Indication: MANTLE CELL LYMPHOMA
     Dosage: 1.86 MG, UNK
     Route: 065
     Dates: start: 20160419

REACTIONS (1)
  - Intra-abdominal haemorrhage [Fatal]
